FAERS Safety Report 8448914-X (Version None)
Quarter: 2012Q2

REPORT INFORMATION
  Report Type: 
  Country: None (occurrence: None)
  Receive Date: 20120619
  Receipt Date: 20110629
  Transmission Date: 20120825
  Serious: Yes (Other)
  Sender: FDA-Public Use
  Company Number: CH-GLAXOSMITHKLINE-B0731416A

PATIENT
  Age: 43 Year
  Sex: Female

DRUGS (2)
  1. MALARONE [Suspect]
     Indication: PROPHYLAXIS
     Dosage: 250MG PER DAY
     Route: 064
     Dates: start: 20110530, end: 20110609
  2. STAMARIL [Suspect]
     Indication: PROPHYLAXIS
     Dosage: .5ML SINGLE DOSE
     Route: 064
     Dates: start: 20110517, end: 20110517

REACTIONS (2)
  - ABORTION [None]
  - MATERNAL EXPOSURE DURING PREGNANCY [None]
